FAERS Safety Report 24174004 (Version 1)
Quarter: 2024Q3

REPORT INFORMATION
  Report Type: Spontaneous
  Country: PK (occurrence: PK)
  Receive Date: 20240805
  Receipt Date: 20240805
  Transmission Date: 20241017
  Serious: Yes (Other)
  Sender: ACCORD
  Company Number: PK-Accord-438951

PATIENT
  Age: 49 Year
  Sex: Female

DRUGS (3)
  1. ENTECAVIR [Suspect]
     Active Substance: ENTECAVIR
     Indication: Prophylaxis
  2. INTERFERON ALFA-2B [Suspect]
     Active Substance: INTERFERON ALFA-2B
     Indication: Chronic hepatitis C
     Dosage: SIXTH INJECTION, IFN-ALFA-2B 100 UG/WEEK SUBCUTANEOUSLY
     Route: 058
  3. RIBAVIRIN [Suspect]
     Active Substance: RIBAVIRIN
     Indication: Chronic hepatitis C
     Dosage: 500 MG/TWICE A DAY

REACTIONS (3)
  - Undifferentiated connective tissue disease [Unknown]
  - Excessive dynamic airway collapse [Unknown]
  - Interstitial lung disease [Recovering/Resolving]
